FAERS Safety Report 14216280 (Version 1)
Quarter: 2017Q4

REPORT INFORMATION
  Report Type: Spontaneous
  Country: FR (occurrence: FR)
  Receive Date: 20171122
  Receipt Date: 20171122
  Transmission Date: 20180321
  Serious: Yes (Hospitalization, Other)
  Sender: FDA-Public Use
  Company Number: FR-INDIVIOR LIMITED-INDV-106399-2017

PATIENT
  Age: 46 Year
  Sex: Male

DRUGS (10)
  1. COCAINE [Suspect]
     Active Substance: COCAINE
     Indication: PRODUCT USED FOR UNKNOWN INDICATION
     Dosage: UNK
     Route: 042
     Dates: start: 2001, end: 2006
  2. CANNABIS [Suspect]
     Active Substance: CANNABIS SATIVA SUBSP. INDICA TOP
     Indication: PRODUCT USED FOR UNKNOWN INDICATION
     Dosage: ONE EVERY TWO DAYS
     Route: 055
  3. NICOTINE. [Suspect]
     Active Substance: NICOTINE
     Indication: PRODUCT USED FOR UNKNOWN INDICATION
     Dosage: 10 ? 15 CIGARETTES/DAY, UNK
     Route: 055
     Dates: start: 2002
  4. SUBUTEX [Suspect]
     Active Substance: BUPRENORPHINE HYDROCHLORIDE
     Dosage: 6 MG, QD
     Route: 042
     Dates: start: 2006
  5. ALCOHOL. [Suspect]
     Active Substance: ALCOHOL
     Indication: PRODUCT USED FOR UNKNOWN INDICATION
     Dosage: 140 G, QD
     Route: 048
  6. ALCOHOL. [Suspect]
     Active Substance: ALCOHOL
     Dosage: 2 L OF BEER PER DAY, UNK
     Route: 048
     Dates: start: 2016
  7. ALCOHOL. [Suspect]
     Active Substance: ALCOHOL
     Dosage: 100 G, QD
     Route: 048
     Dates: start: 2016
  8. HEROIN [Suspect]
     Active Substance: DIAMORPHINE
     Indication: PRODUCT USED FOR UNKNOWN INDICATION
     Dosage: UNK
     Route: 042
     Dates: start: 2001, end: 2006
  9. SUBUTEX [Suspect]
     Active Substance: BUPRENORPHINE HYDROCHLORIDE
     Indication: PRODUCT USED FOR UNKNOWN INDICATION
     Dosage: ONE TABLET PR DAY, UNK
     Route: 065
  10. SUBUTEX [Suspect]
     Active Substance: BUPRENORPHINE HYDROCHLORIDE
     Dosage: THREE TIMES PER WEEK AS INJECTION, UNK
     Route: 065

REACTIONS (12)
  - Splenic infarction [Recovered/Resolved]
  - Hepatitis C [Unknown]
  - Drug abuse [Recovered/Resolved]
  - Drug abuse [Recovering/Resolving]
  - Substance abuse [Unknown]
  - Endocarditis [Recovering/Resolving]
  - Alcohol abuse [Unknown]
  - Drug abuse [Not Recovered/Not Resolved]
  - Intentional product misuse [Recovering/Resolving]
  - Renal infarct [Recovered/Resolved]
  - Intentional product use issue [Unknown]
  - Drug dependence [Recovering/Resolving]

NARRATIVE: CASE EVENT DATE: 2001
